FAERS Safety Report 23801121 (Version 1)
Quarter: 2024Q2

REPORT INFORMATION
  Report Type: Spontaneous
  Country: US (occurrence: US)
  Receive Date: 20240430
  Receipt Date: 20240430
  Transmission Date: 20240716
  Serious: No
  Sender: FDA-Public Use
  Company Number: US-009507513-2404USA011753

PATIENT
  Age: 9 Year
  Sex: Male

DRUGS (4)
  1. NOXAFIL [Suspect]
     Active Substance: POSACONAZOLE
     Indication: Complications of transplanted lung
     Route: 048
  2. NOXAFIL [Suspect]
     Active Substance: POSACONAZOLE
     Indication: Bronchiolitis obliterans syndrome
  3. RUXOLITINIB [Concomitant]
     Active Substance: RUXOLITINIB
     Indication: Complications of transplanted lung
  4. RUXOLITINIB [Concomitant]
     Active Substance: RUXOLITINIB
     Indication: Bronchiolitis obliterans syndrome

REACTIONS (1)
  - Product use in unapproved indication [Unknown]
